FAERS Safety Report 5332642-3 (Version None)
Quarter: 2007Q2

REPORT INFORMATION
  Report Type: 
  Country: None (occurrence: None)
  Receive Date: 20070523
  Receipt Date: 20070515
  Transmission Date: 20071010
  Serious: Yes (Other)
  Sender: FDA-Public Use
  Company Number: FR-PFIZER INC-2007040034

PATIENT
  Sex: Male

DRUGS (4)
  1. RELPAX [Suspect]
     Indication: MIGRAINE
  2. AVLOCARDYL [Concomitant]
  3. ACECLOFENAC [Concomitant]
  4. DOLIPRANE [Concomitant]

REACTIONS (2)
  - DRUG ABUSER [None]
  - MIGRAINE [None]
